FAERS Safety Report 6860410-X (Version None)
Quarter: 2010Q3

REPORT INFORMATION
  Report Type: 
  Country: None (occurrence: None)
  Receive Date: 20100720
  Receipt Date: 20100710
  Transmission Date: 20110219
  Serious: Yes (Hospitalization)
  Sender: FDA-Public Use
  Company Number: US-MPIJNJ-2010-03454

PATIENT
  Age: 65 Year
  Sex: Male
  Weight: 124.4 kg

DRUGS (2)
  1. VELCADE [Suspect]
     Dosage: 1.3 MG/M2, CYCLIC
     Route: 040
     Dates: start: 20100517, end: 20100629
  2. FLAVOPIRIDOL [Suspect]
     Dosage: 75 MG/M2, CYCLIC
     Route: 042
     Dates: start: 20100517, end: 20100629

REACTIONS (3)
  - COLITIS [None]
  - NEUTROPHIL COUNT DECREASED [None]
  - WHITE BLOOD CELL COUNT DECREASED [None]
